FAERS Safety Report 5418455-2 (Version None)
Quarter: 2007Q3

REPORT INFORMATION
  Report Type: 
  Country: None (occurrence: None)
  Receive Date: 20070817
  Receipt Date: 20070816
  Transmission Date: 20080115
  Serious: Yes (Other)
  Sender: FDA-Public Use
  Company Number: US-ROXANE LABORATORIES, INC-2007-DE-04794GD

PATIENT
  Age: 23 Month
  Sex: Female
  Weight: 14.3 kg

DRUGS (9)
  1. MORPHINE SULFATE [Suspect]
     Indication: ANALGESIC THERAPY
     Dosage: 0.28 MG/H
  2. MIDAZOLAM HCL [Suspect]
     Indication: SEDATIVE THERAPY
     Dosage: 0.5 MG/H
  3. THIOPENTAL SODIUM [Suspect]
     Indication: INDUCTION OF ANAESTHESIA
     Route: 042
  4. SUCCINYLCHOLINE CHLORIDE [Suspect]
     Indication: INDUCTION OF ANAESTHESIA
     Route: 042
  5. VECURONIUM BROMIDE [Suspect]
     Indication: INDUCTION OF ANAESTHESIA
     Route: 042
  6. ALIMEMAZINE TARTRATE [Concomitant]
     Indication: SEDATIVE THERAPY
  7. TRICLOFOS [Concomitant]
     Indication: SEDATIVE THERAPY
  8. RECOMBINANT HUMAN ACID ALPHA GLUCOSIDASE [Concomitant]
     Indication: GLYCOGEN STORAGE DISEASE TYPE II
     Route: 042
  9. SODIUM FEREDETATE [Concomitant]
     Indication: IRON DEFICIENCY

REACTIONS (3)
  - BRADYCARDIA [None]
  - CONDUCTION DISORDER [None]
  - ELECTROCARDIOGRAM QRS COMPLEX PROLONGED [None]
